FAERS Safety Report 23646683 (Version 1)
Quarter: 2024Q1

REPORT INFORMATION
  Report Type: Spontaneous
  Country: ES (occurrence: ES)
  Receive Date: 20240319
  Receipt Date: 20240319
  Transmission Date: 20240410
  Serious: Yes (Other)
  Sender: FDA-Public Use
  Company Number: ES-GLAXOSMITHKLINE-ES2024EME032679

PATIENT

DRUGS (1)
  1. JEMPERLI [Suspect]
     Active Substance: DOSTARLIMAB-GXLY
     Indication: Endometrial cancer
     Dosage: 500 MG Q3W FOR THE FIRST 4 CYCLES FOLLOWED BY 1000 MG Q 6W FOR ALL SUBSEQUENT CYCLES

REACTIONS (1)
  - Mucosal inflammation [Recovering/Resolving]
